FAERS Safety Report 5354867-3 (Version None)
Quarter: 2007Q2

REPORT INFORMATION
  Report Type: 
  Country: None (occurrence: None)
  Receive Date: 20070612
  Receipt Date: 20070601
  Transmission Date: 20071010
  Serious: Yes (Hospitalization)
  Sender: FDA-Public Use
  Company Number: FR-PFIZER INC-2007044069

PATIENT
  Age: 63 Year
  Sex: Male

DRUGS (7)
  1. ALDACTONE [Suspect]
     Indication: HYPERALDOSTERONISM
     Dosage: DAILY DOSE:25MG-TEXT:25 MG DAILY
     Route: 048
  2. AMARYL [Concomitant]
     Indication: DIABETES MELLITUS
  3. ATACAND [Concomitant]
     Indication: ESSENTIAL HYPERTENSION
  4. CARDENSIEL [Concomitant]
     Indication: CARDIAC FAILURE
  5. PLAVIX [Concomitant]
  6. SIMVASTATIN [Concomitant]
  7. INSULIN ASPART [Concomitant]

REACTIONS (3)
  - DEHYDRATION [None]
  - HYPERKALAEMIA [None]
  - RENAL FAILURE ACUTE [None]
